FAERS Safety Report 4286817-5 (Version None)
Quarter: 2004Q1

REPORT INFORMATION
  Report Type: 
  Country: None (occurrence: None)
  Receive Date: 20040204
  Receipt Date: 20040127
  Transmission Date: 20041129
  Serious: Yes (Hospitalization, Other)
  Sender: FDA-Public Use
  Company Number: US-JNJFOC-20030905179

PATIENT
  Age: 43 Year
  Sex: Male
  Weight: 68.0396 kg

DRUGS (13)
  1. DURAGESIC [Suspect]
     Indication: PAIN
     Dosage: SEE IMAGE
     Route: 062
     Dates: start: 20030902, end: 20030905
  2. DURAGESIC [Suspect]
     Indication: PAIN
     Dosage: SEE IMAGE
     Route: 062
     Dates: start: 20000601
  3. DURAGESIC [Suspect]
     Indication: PAIN
     Dosage: SEE IMAGE
     Route: 062
     Dates: start: 20030201
  4. DURAGESIC [Suspect]
     Indication: PAIN
     Dosage: SEE IMAGE
     Route: 062
     Dates: start: 20030906
  5. SEROQUEL [Concomitant]
  6. INSULIN [Concomitant]
  7. PERCOCET [Concomitant]
  8. AMBIEN [Concomitant]
  9. NORFLEX [Concomitant]
  10. ZYRTEC D (CETIRIZINE HYDROCHLORIDE) [Concomitant]
  11. REMERON [Concomitant]
  12. CELEXA [Concomitant]
  13. PRAVACHOL [Concomitant]

REACTIONS (7)
  - BLOOD GLUCOSE DECREASED [None]
  - CONVULSION [None]
  - DIABETES MELLITUS INADEQUATE CONTROL [None]
  - DRUG INEFFECTIVE [None]
  - FALL [None]
  - HYPOGLYCAEMIA UNAWARENESS [None]
  - PNEUMONIA [None]
